FAERS Safety Report 17682377 (Version 2)
Quarter: 2020Q2

REPORT INFORMATION
  Report Type: Spontaneous
  Country: US (occurrence: US)
  Receive Date: 20200418
  Receipt Date: 20200619
  Transmission Date: 20200714
  Serious: No
  Sender: FDA-Public Use
  Company Number: US-ASTRAZENECA-2020SE47264

PATIENT
  Age: 31 Year
  Sex: Male
  Weight: 106.6 kg

DRUGS (2)
  1. SYMBICORT [Suspect]
     Active Substance: BUDESONIDE\FORMOTEROL FUMARATE DIHYDRATE
     Indication: ASTHMA
     Dosage: 160/4.5 MCG, TWICE DAILY
     Route: 055
     Dates: start: 201807
  2. SYMBICORT [Suspect]
     Active Substance: BUDESONIDE\FORMOTEROL FUMARATE DIHYDRATE
     Indication: ASTHMA
     Dosage: 160/4.5 MCG, TWICE DAILY
     Route: 055
     Dates: start: 201807

REACTIONS (4)
  - Dyspnoea [Unknown]
  - Wrong technique in device usage process [Unknown]
  - Product use issue [Unknown]
  - Device issue [Unknown]

NARRATIVE: CASE EVENT DATE: 2018
